FAERS Safety Report 6848573-3 (Version None)
Quarter: 2010Q3

REPORT INFORMATION
  Report Type: 
  Country: None (occurrence: None)
  Receive Date: 20100716
  Receipt Date: 20100714
  Transmission Date: 20110219
  Serious: Yes (Death, Other)
  Sender: FDA-Public Use
  Company Number: GB-BRISTOL-MYERS SQUIBB COMPANY-13835152

PATIENT
  Age: 32 Year
  Sex: Male

DRUGS (3)
  1. VEPESID [Suspect]
     Indication: HODGKIN'S DISEASE
     Dosage: 8 DAYS DOSAGE OVER A 3 DAYS PERIOD
  2. CCNU [Suspect]
     Indication: HODGKIN'S DISEASE
  3. CCNU [Suspect]
     Dosage: 9 MONTHS DOSAGE OVER A 2 MONTHS

REACTIONS (2)
  - MEDICATION ERROR [None]
  - OVERDOSE [None]
